FAERS Safety Report 8216285-X (Version None)
Quarter: 2012Q1

REPORT INFORMATION
  Report Type: 
  Country: None (occurrence: None)
  Receive Date: 20120316
  Receipt Date: 20120307
  Transmission Date: 20120608
  Serious: Yes (Other)
  Sender: FDA-Public Use
  Company Number: PHHY2012BR021830

PATIENT

DRUGS (3)
  1. VITAMIN D [Concomitant]
  2. ZOLEDRONOC ACID [Suspect]
     Indication: TRAUMATIC FRACTURE
     Dosage: 5 MG, YEARLY
     Route: 042
  3. CALCIUM [Concomitant]

REACTIONS (1)
  - WRIST FRACTURE [None]
